FAERS Safety Report 8720430 (Version 2)
Quarter: 2012Q4

REPORT INFORMATION
  Report Type: 
  Country: US (occurrence: US)
  Receive Date: 20120813
  Receipt Date: 20120923
  Transmission Date: 20130627
  Serious: No
  Sender: FDA-Public Use
  Company Number: US-009507513-1208USA003083

PATIENT
  Age: 65 Year
  Sex: Female

DRUGS (8)
  1. INTEGRILIN [Suspect]
     Dosage: UNK
     Dates: start: 2010
  2. INTEGRILIN [Suspect]
     Dosage: 180 Microgram per kilogram, Once
     Route: 040
  3. INTEGRILIN [Suspect]
     Dosage: 2 microgram/kg/min
     Route: 041
  4. ASPIRIN [Concomitant]
  5. LIQUAEMIN [Concomitant]
  6. CLOPIDOGREL [Concomitant]
  7. TAXOTERE [Concomitant]
  8. CARBOPLATIN [Concomitant]

REACTIONS (2)
  - Thrombocytopenia [Recovered/Resolved]
  - Thrombosis [Unknown]
